FAERS Safety Report 12996952 (Version 2)
Quarter: 2016Q4

REPORT INFORMATION
  Report Type: Report from Study
  Country: None (occurrence: TW)
  Receive Date: 20161205
  Receipt Date: 20161205
  Transmission Date: 20170207
  Serious: Yes (Life-Threatening, Other)
  Sender: FDA-Public Use
  Company Number: TW-ABBVIE-16K-153-1772231-00

PATIENT
  Age: 59 Year
  Sex: Female
  Weight: 65 kg

DRUGS (4)
  1. HUMIRA [Suspect]
     Active Substance: ADALIMUMAB
     Indication: RHEUMATOID ARTHRITIS
     Route: 058
     Dates: start: 20071115, end: 20160929
  2. PREDNISOLONE (NON-ABBVIE) [Concomitant]
     Indication: RHEUMATOID ARTHRITIS
     Route: 048
     Dates: start: 20040318
  3. METHOTREXATE. [Concomitant]
     Active Substance: METHOTREXATE
     Indication: RHEUMATOID ARTHRITIS
     Route: 048
     Dates: start: 20001102
  4. CELEBREX [Concomitant]
     Active Substance: CELECOXIB
     Indication: RHEUMATOID ARTHRITIS
     Route: 048
     Dates: start: 20011213

REACTIONS (24)
  - Lung adenocarcinoma stage II [Unknown]
  - Spinal compression fracture [Unknown]
  - Meningioma [Unknown]
  - Kyphosis [Unknown]
  - Pneumonia [Unknown]
  - Rib fracture [Unknown]
  - Subdural haematoma [Unknown]
  - Hepatic cyst [Unknown]
  - Cardiomegaly [Unknown]
  - Spinal osteoarthritis [Unknown]
  - Pleural calcification [Unknown]
  - Pulmonary congestion [Unknown]
  - Empyema [Unknown]
  - Rib deformity [Unknown]
  - Osteoporosis [Unknown]
  - Tooth disorder [Unknown]
  - Pleurisy [Unknown]
  - Oral discomfort [Unknown]
  - Exostosis [Unknown]
  - Hepatic neoplasm [Unknown]
  - Sinusitis [Unknown]
  - Aortic arteriosclerosis [Unknown]
  - Metastases to central nervous system [Unknown]
  - Pulmonary fibrosis [Unknown]

NARRATIVE: CASE EVENT DATE: 20161005
